FAERS Safety Report 18215259 (Version 1)
Quarter: 2020Q3

REPORT INFORMATION
  Report Type: Spontaneous
  Country: US (occurrence: US)
  Receive Date: 20200831
  Receipt Date: 20200831
  Transmission Date: 20201103
  Serious: Yes (Hospitalization, Other)
  Sender: FDA-Public Use
  Company Number: US-PURDUE-USA-2020-0163957

PATIENT
  Sex: Male

DRUGS (4)
  1. OXYCONTIN [Suspect]
     Active Substance: OXYCODONE HYDROCHLORIDE
     Indication: BREAKTHROUGH PAIN
     Dosage: UNKNOWN
     Route: 048
     Dates: start: 200506
  2. METHADONE [Suspect]
     Active Substance: METHADONE HYDROCHLORIDE
     Indication: INTERVERTEBRAL DISC DEGENERATION
     Dosage: UNKNOWN
     Route: 048
     Dates: start: 200505, end: 20050531
  3. OXYCODONE HCL TABLETS (RHODES 91?490) [Suspect]
     Active Substance: OXYCODONE HYDROCHLORIDE
     Dosage: UNKNOWN
     Route: 048
     Dates: start: 200506
  4. OXYCODONE HCL TABLETS (RHODES 91?490) [Suspect]
     Active Substance: OXYCODONE HYDROCHLORIDE
     Indication: INTERVERTEBRAL DISC DEGENERATION
     Dosage: UNKNOWN
     Route: 048
     Dates: start: 2004, end: 200505

REACTIONS (8)
  - Mood swings [Unknown]
  - Unresponsive to stimuli [Unknown]
  - Drug withdrawal syndrome [Unknown]
  - Abnormal behaviour [Unknown]
  - Depression [Unknown]
  - Drug dependence [Recovered/Resolved]
  - Anxiety [Unknown]
  - Amnesia [Unknown]
